FAERS Safety Report 4437454-0 (Version None)
Quarter: 2004Q3

REPORT INFORMATION
  Report Type: 
  Country: None (occurrence: None)
  Receive Date: 20040830
  Receipt Date: 20040728
  Transmission Date: 20050211
  Serious: Yes (Life-Threatening, Hospitalization)
  Sender: FDA-Public Use
  Company Number: JP-MERCK-0407USA02551

PATIENT
  Age: 92 Year
  Sex: Female

DRUGS (10)
  1. CLOSTRIDIUM BUTYRICUM (AS DRUG) [Concomitant]
     Indication: DIARRHOEA
     Route: 048
     Dates: start: 20030509, end: 20040726
  2. CEFZON [Concomitant]
     Route: 048
     Dates: start: 20040724, end: 20040726
  3. PEPCID [Suspect]
     Indication: GASTRIC ULCER
     Route: 048
     Dates: start: 20021016, end: 20040726
  4. LASIX [Concomitant]
     Indication: OEDEMA
     Route: 048
     Dates: start: 20030730, end: 20040726
  5. LOXONIN [Concomitant]
     Indication: PYREXIA
     Route: 048
     Dates: start: 20040724, end: 20040726
  6. MAGNESIUM OXIDE [Concomitant]
     Indication: CONSTIPATION
     Route: 048
     Dates: start: 19910731, end: 20040726
  7. CYTOTEC [Concomitant]
     Indication: PYREXIA
     Route: 048
     Dates: start: 20040724, end: 20040726
  8. NITRODERM [Concomitant]
     Indication: ANGINA PECTORIS
     Route: 061
     Dates: start: 19910208, end: 20040726
  9. RHYTHMY [Concomitant]
     Indication: INSOMNIA
     Route: 048
     Dates: start: 19940510, end: 20040726
  10. PURSENNID [Concomitant]
     Indication: CONSTIPATION
     Route: 048
     Dates: start: 19940607, end: 20040726

REACTIONS (10)
  - ANOREXIA [None]
  - DIARRHOEA [None]
  - DISSEMINATED INTRAVASCULAR COAGULATION [None]
  - HAEMATOCHEZIA [None]
  - NASOPHARYNGITIS [None]
  - OEDEMA [None]
  - PYREXIA [None]
  - RENAL FAILURE [None]
  - THROMBOCYTOPENIA [None]
  - URINARY TRACT INFECTION [None]
